FAERS Safety Report 4734334-8 (Version None)
Quarter: 2005Q3

REPORT INFORMATION
  Report Type: 
  Country: None (occurrence: None)
  Receive Date: 20050804
  Receipt Date: 20050712
  Transmission Date: 20060218
  Serious: Yes (Hospitalization)
  Sender: FDA-Public Use
  Company Number: DE-BOEHRINGER INGELHEIM PHARMACEUTICALS, INC.-2005-DE-02715DE

PATIENT
  Sex: Male
  Weight: 54.7 kg

DRUGS (1)
  1. ALNA [Suspect]
     Indication: BENIGN PROSTATIC HYPERPLASIA
     Route: 048
     Dates: start: 20050707, end: 20050710

REACTIONS (3)
  - DYSPHAGIA [None]
  - OESOPHAGEAL OBSTRUCTION [None]
  - TRACHEAL DISORDER [None]
